FAERS Safety Report 7278237-6 (Version None)
Quarter: 2011Q1

REPORT INFORMATION
  Report Type: 
  Country: None (occurrence: None)
  Receive Date: 20110114
  Receipt Date: 20110114
  Transmission Date: 20110831
  Serious: Yes (Other)
  Sender: FDA-Public Use
  Company Number: None

PATIENT
  Age: 77 Year
  Sex: Female
  Weight: 95.2554 kg

DRUGS (2)
  1. INSULIN [Concomitant]
  2. TOP CARE ALCOHOL PREP PADS 70% ETOH TOP CARE [Suspect]
     Dosage: QID TOP
     Route: 061
     Dates: start: 20100101, end: 20101230

REACTIONS (2)
  - APPLICATION SITE REACTION [None]
  - PRODUCT QUALITY ISSUE [None]
